FAERS Safety Report 6420635-4 (Version None)
Quarter: 2009Q4

REPORT INFORMATION
  Report Type: 
  Country: None (occurrence: None)
  Receive Date: 20091027
  Receipt Date: 20091015
  Transmission Date: 20100525
  Serious: Yes (Other)
  Sender: FDA-Public Use
  Company Number: 231911K08USA

PATIENT
  Age: 64 Year
  Sex: Male
  Weight: 105 kg

DRUGS (4)
  1. REBIF [Suspect]
     Indication: MULTIPLE SCLEROSIS
     Dosage: 44 MCG, 3 IN 1 WEEKS, SUBCUTANEOUS
     Route: 058
     Dates: start: 20040915
  2. UNIVASC [Concomitant]
  3. LEXAPRO [Concomitant]
  4. PREVACID [Concomitant]

REACTIONS (2)
  - SKIN GRAFT [None]
  - SQUAMOUS CELL CARCINOMA OF SKIN [None]
